FAERS Safety Report 7023171-X (Version None)
Quarter: 2010Q3

REPORT INFORMATION
  Report Type: 
  Country: None (occurrence: None)
  Receive Date: 20100930
  Receipt Date: 20100920
  Transmission Date: 20110219
  Serious: Yes (Hospitalization, Other)
  Sender: FDA-Public Use
  Company Number: US-PFIZER INC-2010119135

PATIENT
  Sex: Female
  Weight: 74.8 kg

DRUGS (3)
  1. SUTENT [Suspect]
     Indication: RENAL CANCER
     Dosage: 37.5 MG, 1X/DAY
     Route: 048
     Dates: start: 20100601
  2. SUTENT [Suspect]
     Indication: HEPATIC NEOPLASM MALIGNANT
  3. METFORMIN [Concomitant]
     Indication: DIABETES MELLITUS
     Dosage: 500 MG, UNK

REACTIONS (2)
  - DEHYDRATION [None]
  - LETHARGY [None]
